FAERS Safety Report 16019982 (Version 1)
Quarter: 2019Q1

REPORT INFORMATION
  Report Type: Spontaneous
  Country: ES (occurrence: ES)
  Receive Date: 20190228
  Receipt Date: 20190228
  Transmission Date: 20190418
  Serious: Yes (Death, Hospitalization, Other)
  Sender: FDA-Public Use
  Company Number: ES-GILEAD-2018-0363790

PATIENT
  Age: 73 Year
  Sex: Male

DRUGS (7)
  1. CEFEPIME [Concomitant]
     Active Substance: CEFEPIME HYDROCHLORIDE
  2. VANCOMYCIN [Concomitant]
     Active Substance: VANCOMYCIN
  3. ANIDULAFUNGIN [Concomitant]
     Active Substance: ANIDULAFUNGIN
  4. OMEPRAZOLE. [Concomitant]
     Active Substance: OMEPRAZOLE
  5. OLANZAPINE. [Concomitant]
     Active Substance: OLANZAPINE
  6. MIRTAZAPINE. [Concomitant]
     Active Substance: MIRTAZAPINE
  7. ZYDELIG [Suspect]
     Active Substance: IDELALISIB
     Indication: CHRONIC LYMPHOCYTIC LEUKAEMIA
     Dosage: UNK
     Route: 065
     Dates: start: 20180209, end: 20180830

REACTIONS (3)
  - Pseudomonal sepsis [Fatal]
  - Inflammation [Fatal]
  - Colitis ulcerative [Fatal]

NARRATIVE: CASE EVENT DATE: 20180830
